FAERS Safety Report 4364146-9 (Version None)
Quarter: 2004Q2

REPORT INFORMATION
  Report Type: 
  Country: None (occurrence: None)
  Receive Date: 20040519
  Receipt Date: 20040507
  Transmission Date: 20050107
  Serious: Yes (Death)
  Sender: FDA-Public Use
  Company Number: S04-USA-02685-01

PATIENT
  Age: 82 Year
  Sex: Female
  Weight: 55.3388 kg

DRUGS (11)
  1. NAMENDA [Suspect]
     Indication: DEMENTIA ALZHEIMER'S TYPE
     Dosage: 20 MG QD PO
     Route: 048
     Dates: end: 20040410
  2. NAMENDA [Suspect]
     Indication: DEMENTIA ALZHEIMER'S TYPE
     Dates: start: 20040212
  3. REMINYL [Suspect]
     Indication: DEMENTIA ALZHEIMER'S TYPE
  4. COUMADIN [Concomitant]
  5. COZAAR [Concomitant]
  6. IMDUR [Concomitant]
  7. PROTONIX [Concomitant]
  8. PRAVACHOL [Concomitant]
  9. LASIX [Concomitant]
  10. LANOXIN [Concomitant]
  11. COMBIVENT [Concomitant]

REACTIONS (1)
  - RENAL FAILURE ACUTE [None]
